FAERS Safety Report 5904105-5 (Version None)
Quarter: 2008Q3

REPORT INFORMATION
  Report Type: 
  Country: None (occurrence: None)
  Receive Date: 20080919
  Receipt Date: 20080710
  Transmission Date: 20090109
  Serious: Yes (Other)
  Sender: FDA-Public Use
  Company Number: US-WYE-H05055108

PATIENT
  Age: 40 Year
  Sex: Female
  Weight: 81.72 kg

DRUGS (3)
  1. PRISTIQ [Suspect]
     Indication: DEPRESSION
     Dosage: 50 MG 1X PER 1 DAY, ORAL
     Route: 048
     Dates: start: 20080708
  2. ORTHO TRI-CYCLEN [Concomitant]
  3. XANAX [Concomitant]

REACTIONS (3)
  - COLD SWEAT [None]
  - FEELING HOT [None]
  - INSOMNIA [None]
